FAERS Safety Report 16099230 (Version 1)
Quarter: 2019Q1

REPORT INFORMATION
  Report Type: Spontaneous
  Country: IT (occurrence: IT)
  Receive Date: 20190321
  Receipt Date: 20190321
  Transmission Date: 20190418
  Serious: Yes (Other)
  Sender: FDA-Public Use
  Company Number: IT-CELLTRION INC.-2019IT017589

PATIENT

DRUGS (2)
  1. CYCLOPHOSPHAMIDE. [Concomitant]
     Active Substance: CYCLOPHOSPHAMIDE
     Indication: CHEMOTHERAPY
     Dosage: 600 MILLIGRAM/ SQ. METER
     Route: 065
  2. TRASTUZUMAB (UNKNOWN) [Suspect]
     Active Substance: TRASTUZUMAB
     Indication: HER-2 POSITIVE BREAST CANCER
     Dosage: SCHEDULED TO RECEIVE TREATMENT WITH SC TRASTUZUMAB INJECTION 600MG PER 5ML EVERY THREE WEEKS
     Route: 058

REACTIONS (2)
  - Incorrect route of product administration [None]
  - Tachycardia [Unknown]
